FAERS Safety Report 9129324 (Version 2)
Quarter: 2013Q2

REPORT INFORMATION
  Report Type: Spontaneous
  Country: JP (occurrence: JP)
  Receive Date: 20130125
  Receipt Date: 20130628
  Transmission Date: 20140414
  Serious: Yes (Death, Hospitalization)
  Sender: FDA-Public Use
  Company Number: PHHY2013JP003887

PATIENT
  Age: 57 Year
  Sex: Male

DRUGS (4)
  1. ESANBUTOL [Suspect]
     Route: 048
  2. RIFAMPICIN [Suspect]
  3. ISONIAZID [Suspect]
  4. PYRAZINAMIDE [Suspect]

REACTIONS (12)
  - Hepatic failure [Fatal]
  - Malaise [Fatal]
  - General physical health deterioration [Fatal]
  - Jaundice [Fatal]
  - Hepatic function abnormal [Fatal]
  - Liver injury [Fatal]
  - Hepatic necrosis [Fatal]
  - Hepatomegaly [Fatal]
  - Ascites [Fatal]
  - Alpha 1 foetoprotein increased [Fatal]
  - Hepatic encephalopathy [Fatal]
  - Disseminated intravascular coagulation [Unknown]
